FAERS Safety Report 7195302-2 (Version None)
Quarter: 2010Q4

REPORT INFORMATION
  Report Type: 
  Country: None (occurrence: None)
  Receive Date: 20101223
  Receipt Date: 20100929
  Transmission Date: 20110411
  Serious: No
  Sender: FDA-Public Use
  Company Number: US-AMGEN-KDL442150

PATIENT

DRUGS (1)
  1. ENBREL [Suspect]
     Indication: ANKYLOSING SPONDYLITIS
     Dosage: 25 MG, QWK
     Route: 058
     Dates: start: 20080927

REACTIONS (5)
  - ANKYLOSING SPONDYLITIS [None]
  - HYPERSENSITIVITY [None]
  - INJECTION SITE HAEMORRHAGE [None]
  - REACTION TO PRESERVATIVES [None]
  - STRESS [None]
